FAERS Safety Report 19674323 (Version 3)
Quarter: 2021Q3

REPORT INFORMATION
  Report Type: Spontaneous
  Country: IT (occurrence: IT)
  Receive Date: 20210809
  Receipt Date: 20210904
  Transmission Date: 20211014
  Serious: Yes (Other)
  Sender: FDA-Public Use
  Company Number: IT-AUROBINDO-AUR-APL-2021-033638

PATIENT
  Age: 35 Year
  Sex: Male

DRUGS (2)
  1. FLUCONAZOLE. [Suspect]
     Active Substance: FLUCONAZOLE
     Indication: MUCOCUTANEOUS LEISHMANIASIS
  2. FLUCONAZOLE. [Suspect]
     Active Substance: FLUCONAZOLE
     Indication: CUTANEOUS LEISHMANIASIS
     Dosage: 400 MILLIGRAM, ONCE A DAY(400 MG/DAY)
     Route: 048

REACTIONS (2)
  - Drug effective for unapproved indication [Unknown]
  - Azotaemia [Recovered/Resolved]
